FAERS Safety Report 19708743 (Version 1)
Quarter: 2021Q3

REPORT INFORMATION
  Report Type: Spontaneous
  Country: US (occurrence: US)
  Receive Date: 20210816
  Receipt Date: 20210816
  Transmission Date: 20211014
  Serious: No
  Sender: FDA-Public Use
  Company Number: None

PATIENT
  Age: 84 Year
  Sex: Male

DRUGS (1)
  1. APIXABAN (APIXABAN 5MG TAB) [Suspect]
     Active Substance: APIXABAN
     Indication: DEEP VEIN THROMBOSIS
     Route: 048
     Dates: start: 20210321, end: 20210402

REACTIONS (9)
  - Hypotension [None]
  - Troponin increased [None]
  - Melaena [None]
  - Asthenia [None]
  - Anaemia [None]
  - Haemorrhage [None]
  - Dizziness [None]
  - Haemoglobin decreased [None]
  - Heart injury [None]

NARRATIVE: CASE EVENT DATE: 20210422
